FAERS Safety Report 4794897-3 (Version None)
Quarter: 2005Q4

REPORT INFORMATION
  Report Type: 
  Country: None (occurrence: None)
  Receive Date: 20051012
  Receipt Date: 20050928
  Transmission Date: 20060501
  Serious: Yes (Death)
  Sender: FDA-Public Use
  Company Number: MX-BOEHRINGER INGELHEIM PHARMACEUTICALS, INC.-2005-DE-03998GD

PATIENT
  Age: 47 Year
  Sex: Male

DRUGS (6)
  1. NEVIRAPINE [Suspect]
     Indication: HIV INFECTION
     Dates: start: 19980201, end: 19981001
  2. D4T [Suspect]
     Indication: HIV INFECTION
     Dates: start: 19980201, end: 19981101
  3. DDI [Suspect]
     Indication: HIV INFECTION
     Dates: start: 19980201, end: 19981101
  4. RITONAVIR [Suspect]
     Indication: HIV INFECTION
     Dates: start: 19981001, end: 19981101
  5. SAQUINAVIR [Suspect]
     Indication: HIV INFECTION
     Dates: start: 19981001, end: 19981101
  6. HYDROXYUREA [Suspect]
     Indication: HIV INFECTION
     Dates: start: 19981001, end: 19981101

REACTIONS (13)
  - ASTERIXIS [None]
  - CHROMATURIA [None]
  - DRUG INEFFECTIVE [None]
  - DRUG TOXICITY [None]
  - HAEMORRHAGE [None]
  - HEPATIC FAILURE [None]
  - HEPATIC STEATOSIS [None]
  - HEPATOMEGALY [None]
  - JAUNDICE [None]
  - MALAISE [None]
  - METABOLIC ACIDOSIS [None]
  - PYREXIA [None]
  - SPLENOMEGALY [None]
